FAERS Safety Report 4922476-3 (Version None)
Quarter: 2006Q1

REPORT INFORMATION
  Report Type: 
  Country: None (occurrence: None)
  Receive Date: 20060224
  Receipt Date: 20051213
  Transmission Date: 20060701
  Serious: Yes (Other)
  Sender: FDA-Public Use
  Company Number: 2005AC01963

PATIENT
  Age: 21 Year
  Sex: Male
  Weight: 115 kg

DRUGS (2)
  1. SEROQUEL [Suspect]
     Indication: SCHIZOPHRENIA
     Route: 048
  2. HALDOLDEC [Suspect]
     Indication: SCHIZOPHRENIA
     Route: 030

REACTIONS (3)
  - DYSLIPIDAEMIA [None]
  - PSYCHOTIC DISORDER [None]
  - THERAPY NON-RESPONDER [None]
